FAERS Safety Report 15699033 (Version 1)
Quarter: 2018Q4

REPORT INFORMATION
  Report Type: Spontaneous
  Country: US (occurrence: US)
  Receive Date: 20181207
  Receipt Date: 20181207
  Transmission Date: 20190205
  Serious: Yes (Hospitalization)
  Sender: FDA-Public Use
  Company Number: US-VERTEX PHARMACEUTICALS-2018-009069

PATIENT
  Age: 30 Year
  Sex: Female

DRUGS (13)
  1. CAYSTON [Concomitant]
     Active Substance: AZTREONAM
  2. HYDROMORPHON [Concomitant]
     Active Substance: HYDROMORPHONE
  3. ADEKS [Concomitant]
  4. SYMDEKO [Suspect]
     Active Substance: IVACAFTOR\TEZACAFTOR
     Indication: CYSTIC FIBROSIS
     Dosage: 100MG TEZACAFTOR/150MG IVACAFTOR AM; 150MG IVACAFTOR PM
     Route: 048
     Dates: start: 20180405
  5. CLOTRIMAZOLE. [Concomitant]
     Active Substance: CLOTRIMAZOLE
  6. COMBIVENT [Concomitant]
     Active Substance: ALBUTEROL SULFATE\IPRATROPIUM BROMIDE
  7. DOXYCYCLINE MONOHYDRATE [Concomitant]
     Active Substance: DOXYCYCLINE
  8. POTASSIUM CHLORIDE. [Concomitant]
     Active Substance: POTASSIUM CHLORIDE
  9. PREDNISONE. [Concomitant]
     Active Substance: PREDNISONE
  10. MOMETASONE [Concomitant]
     Active Substance: MOMETASONE
  11. LINEZOLID. [Concomitant]
     Active Substance: LINEZOLID
  12. LEVOFLOXACIN. [Concomitant]
     Active Substance: LEVOFLOXACIN
  13. AZITHROMYCINE [Concomitant]
     Active Substance: AZITHROMYCIN

REACTIONS (2)
  - Lung infection [Unknown]
  - Pneumothorax [Not Recovered/Not Resolved]

NARRATIVE: CASE EVENT DATE: 201811
